FAERS Safety Report 7436401-7 (Version None)
Quarter: 2011Q2

REPORT INFORMATION
  Report Type: 
  Country: None (occurrence: None)
  Receive Date: 20110426
  Receipt Date: 20110413
  Transmission Date: 20111010
  Serious: No
  Sender: FDA-Public Use
  Company Number: US-BIOGENIDEC-2011BI014345

PATIENT
  Age: 35 Year
  Sex: Female

DRUGS (1)
  1. TYSABRI [Suspect]
     Indication: MULTIPLE SCLEROSIS
     Route: 042
     Dates: start: 20101201

REACTIONS (5)
  - MUSCLE TIGHTNESS [None]
  - NAUSEA [None]
  - ABDOMINAL PAIN UPPER [None]
  - HYPOPHAGIA [None]
  - WEIGHT DECREASED [None]
